FAERS Safety Report 19908849 (Version 2)
Quarter: 2021Q4

REPORT INFORMATION
  Report Type: Spontaneous
  Country: MX (occurrence: MX)
  Receive Date: 20211001
  Receipt Date: 20211026
  Transmission Date: 20220303
  Serious: Yes (Other)
  Sender: FDA-Public Use
  Company Number: MX-PFIZER INC-202101242040

PATIENT
  Age: 64 Year
  Sex: Female

DRUGS (1)
  1. VARENICLINE TARTRATE [Suspect]
     Active Substance: VARENICLINE TARTRATE
     Indication: Smoking cessation therapy
     Dosage: 1 MG

REACTIONS (4)
  - Paralysis [Unknown]
  - Anxiety [Unknown]
  - Tension [Unknown]
  - Depression [Unknown]

NARRATIVE: CASE EVENT DATE: 20210920
